FAERS Safety Report 24381256 (Version 1)
Quarter: 2024Q4

REPORT INFORMATION
  Report Type: Spontaneous
  Country: CO (occurrence: CO)
  Receive Date: 20241001
  Receipt Date: 20241001
  Transmission Date: 20250114
  Serious: Yes (Other)
  Sender: RANBAXY
  Company Number: CO-SUN PHARMACEUTICAL INDUSTRIES LTD-2024R1-470757

PATIENT
  Age: 38 Year
  Sex: Female

DRUGS (4)
  1. CARBOPLATIN [Suspect]
     Active Substance: CARBOPLATIN
     Indication: Breast cancer stage III
     Dosage: UNK (9 CYCLES)
     Route: 065
     Dates: start: 202102, end: 202107
  2. PACLITAXEL [Suspect]
     Active Substance: PACLITAXEL
     Indication: Breast cancer stage III
     Dosage: UNK (9 CYCLES)
     Route: 065
     Dates: start: 202102, end: 202107
  3. PERTUZUMAB [Suspect]
     Active Substance: PERTUZUMAB
     Indication: Breast cancer stage III
     Dosage: UNK (9 CYCLES)
     Route: 065
     Dates: start: 202102, end: 202107
  4. TRASTUZUMAB [Suspect]
     Active Substance: TRASTUZUMAB
     Indication: Breast cancer stage III
     Dosage: UNK (9 CYCLES)
     Route: 065
     Dates: start: 202102, end: 202107

REACTIONS (1)
  - Therapy partial responder [Unknown]
